FAERS Safety Report 19397955 (Version 1)
Quarter: 2021Q2

REPORT INFORMATION
  Report Type: Spontaneous
  Country: US (occurrence: US)
  Receive Date: 20210610
  Receipt Date: 20210610
  Transmission Date: 20210717
  Serious: Yes (Other)
  Sender: FDA-Public Use
  Company Number: US-LEADINGPHARMA-US-2021LEALIT00185

PATIENT
  Age: 30 Year
  Sex: Female
  Weight: 67 kg

DRUGS (5)
  1. FENTANYL. [Suspect]
     Active Substance: FENTANYL
     Dosage: 2 MCG/ML
     Route: 065
  2. EPINEPHRINE;LIDOCAINE [Concomitant]
     Active Substance: EPINEPHRINE\LIDOCAINE
     Indication: PRODUCT USED FOR UNKNOWN INDICATION
     Dosage: 3 ML LIDOCAINE 1.5% WITH EPINEPHRINE 1:200,000
     Route: 065
  3. FENTANYL. [Suspect]
     Active Substance: FENTANYL
     Indication: LABOUR PAIN
     Dosage: 20 MICROGRAMS
     Route: 037
  4. LIDOCAINE. [Suspect]
     Active Substance: LIDOCAINE
     Indication: LABOUR PAIN
     Route: 040
  5. ROPIVACAINE. [Suspect]
     Active Substance: ROPIVACAINE HYDROCHLORIDE
     Indication: LABOUR PAIN
     Route: 065

REACTIONS (1)
  - Horner^s syndrome [Recovered/Resolved]
